FAERS Safety Report 18992505 (Version 3)
Quarter: 2021Q2

REPORT INFORMATION
  Report Type: Spontaneous
  Country: US (occurrence: US)
  Receive Date: 20210310
  Receipt Date: 20210624
  Transmission Date: 20210717
  Serious: No
  Sender: FDA-Public Use
  Company Number: US-PFIZER INC-2021235840

PATIENT
  Age: 53 Year
  Sex: Female

DRUGS (4)
  1. IBRANCE [Suspect]
     Active Substance: PALBOCICLIB
     Dosage: 125 MG
     Dates: start: 20210212
  2. IBRANCE [Suspect]
     Active Substance: PALBOCICLIB
     Dosage: 100 MG
  3. IBRANCE [Suspect]
     Active Substance: PALBOCICLIB
     Dosage: 125 MG
     Dates: start: 20210204
  4. IBRANCE [Suspect]
     Active Substance: PALBOCICLIB
     Dosage: 125 MG
     Dates: start: 20210205

REACTIONS (8)
  - Dry eye [Unknown]
  - Muscle strain [Unknown]
  - Skin disorder [Unknown]
  - Fatigue [Not Recovered/Not Resolved]
  - Weight increased [Unknown]
  - Poor quality sleep [Unknown]
  - Nausea [Unknown]
  - Pain in extremity [Unknown]
